FAERS Safety Report 8468781 (Version 15)
Quarter: 2013Q4

REPORT INFORMATION
  Report Type: Spontaneous
  Country: US (occurrence: US)
  Receive Date: 20120321
  Receipt Date: 20131129
  Transmission Date: 20140711
  Serious: Yes (Hospitalization, Other)
  Sender: FDA-Public Use
  Company Number: US-ASTRAZENECA-2011SE41564

PATIENT
  Age: 60 Year
  Sex: Male
  Weight: 97.5 kg

DRUGS (17)
  1. NEXIUM [Suspect]
     Indication: GASTROOESOPHAGEAL REFLUX DISEASE
     Route: 048
     Dates: start: 2001, end: 201010
  2. NEXIUM [Suspect]
     Indication: GASTROOESOPHAGEAL REFLUX DISEASE
     Route: 048
     Dates: start: 20010801
  3. NEXIUM [Suspect]
     Indication: GASTROOESOPHAGEAL REFLUX DISEASE
     Route: 048
     Dates: start: 2002, end: 201010
  4. PRILOSEC [Suspect]
     Route: 048
     Dates: start: 1996, end: 2002
  5. PRILOSEC [Suspect]
     Dosage: ONCE A DAY
     Dates: start: 20040909
  6. PRILOSEC OTC [Suspect]
     Route: 048
     Dates: start: 2008, end: 2010
  7. TUMS [Concomitant]
     Dosage: 1 TO 2 PER DAY AS NEEDED
     Dates: start: 1990
  8. TUMS [Concomitant]
  9. PEPTO-BISMOL [Concomitant]
     Dosage: OCCASIONAL AS NEEDED
     Dates: start: 1996
  10. ZANTAC [Concomitant]
  11. CLONAZEPAM [Concomitant]
     Dates: start: 201202, end: 201301
  12. AMBIEN [Concomitant]
     Indication: INSOMNIA
     Route: 048
     Dates: start: 20001005
  13. PREVACID/PREVACID OTC [Concomitant]
     Route: 048
     Dates: start: 200702
  14. PREVACID/PREVACID OTC [Concomitant]
     Dates: start: 201001
  15. MILK OF MAGNESIA [Concomitant]
     Dosage: 1 PER DAY AS NEEDED
     Dates: start: 1996, end: 2002
  16. CALCIUM [Concomitant]
  17. VITAMIN D [Concomitant]

REACTIONS (10)
  - Multiple fractures [Unknown]
  - Rib fracture [Unknown]
  - Scapula fracture [Unknown]
  - Fall [Unknown]
  - Spinal fracture [Unknown]
  - Osteoporosis [Unknown]
  - Thoracic vertebral fracture [Unknown]
  - Emotional distress [Unknown]
  - Sleep disorder [Unknown]
  - Depression [Unknown]
